FAERS Safety Report 10557875 (Version 1)
Quarter: 2014Q4

REPORT INFORMATION
  Report Type: Spontaneous
  Country: JP (occurrence: None)
  Receive Date: 20141029
  Receipt Date: 20141029
  Transmission Date: 20150529
  Serious: Yes (Hospitalization)
  Sender: FDA-Public Use
  Company Number: FK201404499

PATIENT
  Age: 60 Year
  Sex: Female

DRUGS (3)
  1. LEUCOVORIN CALCIUM. [Suspect]
     Active Substance: LEUCOVORIN CALCIUM
     Indication: BLADDER CANCER RECURRENT
     Dosage: ADMINISTERED AS 2-H INFUSIONS ON DAY 1
  2. FLUOROURACIL. [Suspect]
     Active Substance: FLUOROURACIL
     Indication: BLADDER CANCER RECURRENT
  3. OXALIPLATIN (OXALIPLATIN) (OXALIPLATIN) [Suspect]
     Active Substance: OXALIPLATIN
     Indication: BLADDER CANCER RECURRENT

REACTIONS (7)
  - Stomatitis [None]
  - Nausea [None]
  - Peripheral sensory neuropathy [None]
  - Toxicity to various agents [None]
  - Dysgeusia [None]
  - Alopecia [None]
  - Febrile neutropenia [None]
